FAERS Safety Report 22167000 (Version 1)
Quarter: 2023Q1

REPORT INFORMATION
  Report Type: Spontaneous
  Country: US (occurrence: None)
  Receive Date: 20230330
  Receipt Date: 20230330
  Transmission Date: 20230417
  Serious: Yes (Hospitalization)
  Sender: FDA-Public Use
  Company Number: None

PATIENT
  Age: 61 Year
  Sex: Male
  Weight: 77.3 kg

DRUGS (1)
  1. CISPLATIN [Suspect]
     Active Substance: CISPLATIN
     Dates: end: 20230321

REACTIONS (6)
  - Decreased appetite [None]
  - Anaemia [None]
  - Nausea [None]
  - Stomatitis [None]
  - Asthenia [None]
  - Myelosuppression [None]

NARRATIVE: CASE EVENT DATE: 20230221
